FAERS Safety Report 4840256-4 (Version None)
Quarter: 2005Q4

REPORT INFORMATION
  Report Type: 
  Country: None (occurrence: None)
  Receive Date: 20051125
  Receipt Date: 20051110
  Transmission Date: 20060501
  Serious: Yes (Death, Hospitalization)
  Sender: FDA-Public Use
  Company Number: 219401

PATIENT
  Age: 51 Year
  Sex: Male

DRUGS (1)
  1. RITUXAN [Suspect]
     Indication: GLOMERULONEPHRITIS

REACTIONS (2)
  - PNEUMONIA STREPTOCOCCAL [None]
  - SEPSIS [None]
